FAERS Safety Report 8312402-1 (Version None)
Quarter: 2012Q2

REPORT INFORMATION
  Report Type: 
  Country: None (occurrence: None)
  Receive Date: 20120425
  Receipt Date: 20120419
  Transmission Date: 20120825
  Serious: Yes (Hospitalization)
  Sender: FDA-Public Use
  Company Number: FR-ABBOTT-12P-056-0927784-00

PATIENT
  Sex: Male

DRUGS (13)
  1. ENALAPRIL MALEATE [Suspect]
     Indication: HYPERTENSION
     Route: 048
     Dates: start: 20081001
  2. LEVOTHYROXINE SODIUM [Suspect]
     Indication: HYPOTHYROIDISM
     Route: 048
     Dates: start: 20081001
  3. SINTROM [Suspect]
     Indication: ATRIAL FIBRILLATION
     Dosage: 1 + 1/4 DF OR 1 DF EVERY OTHER DAY
     Route: 048
     Dates: start: 20081001
  4. DIGOXIN [Suspect]
     Indication: HYPERTENSION
     Route: 048
     Dates: start: 20081001
  5. ALLOPURINOL [Suspect]
     Indication: GOUT
     Route: 048
     Dates: start: 20081001, end: 20120323
  6. INFLUVAC [Suspect]
     Indication: ANTIVIRAL PROPHYLAXIS
     Route: 030
     Dates: start: 20110901, end: 20110901
  7. OMEPRAZOLE [Suspect]
     Indication: GASTRITIS
     Route: 048
     Dates: start: 20081001
  8. DIAMICRON [Suspect]
     Indication: DIABETES MELLITUS
     Route: 048
     Dates: start: 20081001
  9. LASIX [Suspect]
     Indication: CARDIAC FAILURE
     Route: 048
     Dates: start: 20101001
  10. LERCANIDIPINE [Suspect]
     Indication: HYPERTENSION
     Route: 048
     Dates: start: 20081001
  11. TRANDATE [Suspect]
     Indication: HYPERTENSION
     Route: 048
     Dates: start: 20081001
  12. GLUCOPHAGE [Suspect]
     Indication: DIABETES MELLITUS
     Route: 048
     Dates: start: 20081001
  13. SPIRONOLACTONE [Suspect]
     Indication: HYPERTENSION
     Route: 048
     Dates: start: 20081001

REACTIONS (1)
  - LEUKOCYTOCLASTIC VASCULITIS [None]
